FAERS Safety Report 7782527-8 (Version None)
Quarter: 2011Q3

REPORT INFORMATION
  Report Type: 
  Country: None (occurrence: None)
  Receive Date: 20110928
  Receipt Date: 20110915
  Transmission Date: 20111222
  Serious: Yes (Hospitalization, Other)
  Sender: FDA-Public Use
  Company Number: CA-ELI_LILLY_AND_COMPANY-CA201109003984

PATIENT
  Sex: Female

DRUGS (15)
  1. ZYPREXA [Suspect]
     Dosage: 2.5 MG, EACH EVENING
  2. ZYPREXA [Suspect]
     Dosage: 12.5 MG, EACH EVENING
  3. ZYPREXA [Suspect]
     Dosage: 7.5 MG, EACH EVENING
  4. ZYPREXA ZYDIS [Suspect]
     Dosage: 15 MG, UNK
  5. DESYREL [Concomitant]
  6. ALLOPURINOL [Concomitant]
  7. ZYPREXA ZYDIS [Suspect]
     Indication: BIPOLAR DISORDER
     Dosage: 10 MG, UNK
  8. ZYPREXA ZYDIS [Suspect]
     Dosage: 5 MG, UNK
  9. ZYPREXA ZYDIS [Suspect]
     Dosage: 20 MG, UNK
  10. ZYPREXA [Suspect]
     Dosage: 5 MG, EACH EVENING
  11. SEROQUEL [Concomitant]
  12. RESTORIL [Concomitant]
  13. FUROSEMIDE [Concomitant]
  14. ZYPREXA [Suspect]
     Indication: BIPOLAR DISORDER
     Dosage: 10 MG, EACH EVENING
  15. LITHIUM CARBONATE [Concomitant]

REACTIONS (15)
  - INFECTION [None]
  - HEPATIC ENZYME INCREASED [None]
  - HAEMORRHOIDAL HAEMORRHAGE [None]
  - WEIGHT INCREASED [None]
  - HAEMATURIA [None]
  - RENAL FAILURE [None]
  - TYPE 2 DIABETES MELLITUS [None]
  - HEPATOMEGALY [None]
  - INTENTIONAL OVERDOSE [None]
  - HEPATIC STEATOSIS [None]
  - DYSLIPIDAEMIA [None]
  - ILEUS [None]
  - DIVERTICULITIS [None]
  - HYPERTENSION [None]
  - BRONCHITIS [None]
